FAERS Safety Report 25487095 (Version 2)
Quarter: 2025Q3

REPORT INFORMATION
  Report Type: Spontaneous
  Country: EU (occurrence: EU)
  Receive Date: 20250627
  Receipt Date: 20250709
  Transmission Date: 20251021
  Serious: Yes (Death, Hospitalization, Other)
  Sender: SANDOZ
  Company Number: None

PATIENT
  Age: 19 Month
  Sex: Female
  Weight: 10 kg

DRUGS (20)
  1. CYTARABINE [Suspect]
     Active Substance: CYTARABINE
     Dosage: 26 MG, QD
     Route: 037
     Dates: start: 20060524, end: 20060524
  2. CYTARABINE [Suspect]
     Active Substance: CYTARABINE
     Indication: Acute myeloid leukaemia
     Dosage: 26 MG, QD
     Route: 042
     Dates: start: 20060524, end: 20060524
  3. DAUNOXOME [Suspect]
     Active Substance: DAUNORUBICIN CITRATE
     Indication: Acute myeloid leukaemia
     Dosage: 220 MG/M2,QD (100 MG DAILY)
     Route: 042
     Dates: start: 20060525, end: 20060525
  4. DAUNOXOME [Suspect]
     Active Substance: DAUNORUBICIN CITRATE
     Indication: Acute leukaemia
  5. FASTURTEC [Suspect]
     Active Substance: RASBURICASE
     Dosage: 1.5 MG, QD
     Route: 042
     Dates: start: 20060523, end: 20060526
  6. FASTURTEC [Suspect]
     Active Substance: RASBURICASE
     Indication: Gout
     Dosage: 1.5 MG,QD
     Route: 042
     Dates: start: 20060523, end: 20060523
  7. FASTURTEC [Suspect]
     Active Substance: RASBURICASE
     Indication: Tumour lysis syndrome
     Dosage: 1.5 MG,QD
     Route: 042
     Dates: start: 20060519
  8. FASTURTEC [Suspect]
     Active Substance: RASBURICASE
     Dosage: 1.5 MG,QD
     Route: 042
     Dates: start: 20060526, end: 20060526
  9. FASTURTEC [Suspect]
     Active Substance: RASBURICASE
     Dosage: UNK UNK,QD
     Route: 042
     Dates: start: 20060621, end: 20060621
  10. FASTURTEC [Suspect]
     Active Substance: RASBURICASE
     Dosage: UNK UNK,QD
     Route: 042
     Dates: start: 20060625, end: 20060625
  11. FLUDARABINE PHOSPHATE [Suspect]
     Active Substance: FLUDARABINE PHOSPHATE
     Indication: Acute myeloid leukaemia
     Dosage: 10 MG,QD
     Route: 042
     Dates: start: 20060525, end: 20060529
  12. LENOGRASTIM [Suspect]
     Active Substance: LENOGRASTIM
     Indication: Agranulocytosis
     Dosage: 13 IU, QD
     Route: 042
     Dates: start: 20060524, end: 20060529
  13. LENOGRASTIM [Suspect]
     Active Substance: LENOGRASTIM
     Indication: Agranulocytosis
     Dosage: 13 IU, QD
     Route: 042
     Dates: start: 20060524, end: 20060529
  14. ONDANSETRON [Suspect]
     Active Substance: ONDANSETRON
     Indication: Vomiting
     Dosage: 4 MG, QOD
     Route: 048
     Dates: start: 20060523
  15. ONDANSETRON [Suspect]
     Active Substance: ONDANSETRON
     Indication: Nausea
     Dosage: 4 MG, BID
     Route: 048
     Dates: start: 20060523
  16. BACTRIM [Concomitant]
     Active Substance: SULFAMETHOXAZOLE\TRIMETHOPRIM
     Indication: Antifungal prophylaxis
     Route: 065
     Dates: start: 20060524
  17. BACTRIM [Concomitant]
     Active Substance: SULFAMETHOXAZOLE\TRIMETHOPRIM
     Route: 065
     Dates: start: 20060524
  18. CARDIOXANE [Concomitant]
     Active Substance: DEXRAZOXANE HYDROCHLORIDE
     Indication: Product used for unknown indication
     Route: 042
     Dates: start: 200605, end: 200605
  19. ALIZAPRIDE HYDROCHLORIDE [Concomitant]
     Active Substance: ALIZAPRIDE HYDROCHLORIDE
     Indication: Product used for unknown indication
     Route: 065
     Dates: start: 20060524
  20. ALIZAPRIDE HYDROCHLORIDE [Concomitant]
     Active Substance: ALIZAPRIDE HYDROCHLORIDE
     Route: 065
     Dates: start: 20060524

REACTIONS (14)
  - Pain [Fatal]
  - Accidental overdose [Fatal]
  - Vomiting [Fatal]
  - Chills [Fatal]
  - Cardiac arrest [Fatal]
  - Fatigue [Fatal]
  - Product administration error [Fatal]
  - Respiratory distress [Fatal]
  - Cardiac failure [Fatal]
  - Bone marrow failure [Fatal]
  - Congenital aplasia [Recovered/Resolved]
  - Tachypnoea [Unknown]
  - Tachycardia [Unknown]
  - Off label use [Unknown]

NARRATIVE: CASE EVENT DATE: 20060525
